FAERS Safety Report 4496895-6 (Version None)
Quarter: 2004Q3

REPORT INFORMATION
  Report Type: 
  Country: None (occurrence: None)
  Receive Date: 20040928
  Receipt Date: 20040709
  Transmission Date: 20050211
  Serious: No
  Sender: FDA-Public Use
  Company Number: 04P-163-0260385-00

PATIENT
  Sex: Female
  Weight: 74.8435 kg

DRUGS (6)
  1. HUMIRA [Suspect]
     Indication: ANKYLOSING SPONDYLITIS
     Dosage: 40 MG, 1 IN 2 WK, SUBCUTANEOUS
     Route: 058
     Dates: start: 20040401
  2. NABUMETONE [Concomitant]
  3. DIAZIDE [Concomitant]
  4. SINGULAIR [Concomitant]
  5. SERTRALINE HYDROCHLORIDE [Concomitant]
  6. PREDNISONE [Concomitant]

REACTIONS (3)
  - ALOPECIA [None]
  - INJECTION SITE BURNING [None]
  - RHEUMATOID ARTHRITIS [None]
